FAERS Safety Report 16837004 (Version 1)
Quarter: 2019Q3

REPORT INFORMATION
  Report Type: Spontaneous
  Country: AU (occurrence: AU)
  Receive Date: 20190923
  Receipt Date: 20190923
  Transmission Date: 20191005
  Serious: No
  Sender: FDA-Public Use
  Company Number: AU-NOVEN PHARMACEUTICALS, INC.-AU2018000592

PATIENT

DRUGS (1)
  1. ESTRADIOL/NORETHISTERONE ACETATE [Suspect]
     Active Substance: ESTRADIOL\NORETHINDRONE ACETATE
     Indication: PRODUCT USED FOR UNKNOWN INDICATION
     Dosage: 50/140 OT, UNKNOWN
     Route: 062
     Dates: start: 201704

REACTIONS (3)
  - Skin irritation [Unknown]
  - Product adhesion issue [Unknown]
  - Blister [Unknown]

NARRATIVE: CASE EVENT DATE: 20180929
